FAERS Safety Report 8072567-6 (Version None)
Quarter: 2011Q4

REPORT INFORMATION
  Report Type: 
  Country: None (occurrence: None)
  Receive Date: 20111221
  Receipt Date: 20110831
  Transmission Date: 20120403
  Serious: Yes (Other)
  Sender: FDA-Public Use
  Company Number: PHHY2010US57480

PATIENT
  Age: 41 Year
  Sex: Female
  Weight: 90 kg

DRUGS (4)
  1. EXJADE [Suspect]
     Indication: SICKLE CELL ANAEMIA
     Dosage: 500 MG, DAILY, ORAL
     Route: 048
     Dates: start: 20100711
  2. EXJADE [Suspect]
     Indication: IRON OVERLOAD
     Dosage: 500 MG, DAILY, ORAL
     Route: 048
     Dates: start: 20100711
  3. EXJADE [Suspect]
     Indication: SICKLE CELL ANAEMIA
     Dosage: 500 MG, DAILY, ORAL
     Route: 048
     Dates: start: 20060712
  4. EXJADE [Suspect]
     Indication: IRON OVERLOAD
     Dosage: 500 MG, DAILY, ORAL
     Route: 048
     Dates: start: 20060712

REACTIONS (2)
  - RENAL FAILURE CHRONIC [None]
  - RENAL FAILURE [None]
